FAERS Safety Report 6448433-6 (Version None)
Quarter: 2009Q4

REPORT INFORMATION
  Report Type: 
  Country: None (occurrence: None)
  Receive Date: 20091119
  Receipt Date: 20091119
  Transmission Date: 20100525
  Serious: Yes (Hospitalization)
  Sender: FDA-Public Use
  Company Number: None

PATIENT
  Age: 68 Year
  Sex: Male
  Weight: 81.6 kg

DRUGS (2)
  1. CYTOXAN [Suspect]
     Indication: B-CELL LYMPHOMA
     Dosage: 750 MG/M2, ONCE, IV
     Route: 042
  2. ADRIAMYCIN PFS [Suspect]
     Dosage: 50 MG/M2, ONCE, IV
     Route: 042

REACTIONS (5)
  - CANDIDIASIS [None]
  - FLANK PAIN [None]
  - MUCOSAL INFLAMMATION [None]
  - NEUTROPENIA [None]
  - OESOPHAGEAL CANDIDIASIS [None]
